FAERS Safety Report 9818950 (Version 2)
Quarter: 2014Q3

REPORT INFORMATION
  Report Type: Spontaneous
  Country: US (occurrence: US)
  Receive Date: 20140115
  Receipt Date: 20140820
  Transmission Date: 20150326
  Serious: Yes (Hospitalization, Other)
  Sender: FDA-Public Use
  Company Number: US-009507513-1401USA004996

PATIENT
  Sex: Female

DRUGS (1)
  1. NUVARING [Suspect]
     Active Substance: ETHINYL ESTRADIOL\ETONOGESTREL
     Indication: CONTRACEPTION
     Dosage: UNK
     Route: 067
     Dates: start: 20040119, end: 20041010

REACTIONS (10)
  - Headache [Unknown]
  - Vomiting [Unknown]
  - Chronic fatigue syndrome [Unknown]
  - Migraine [Unknown]
  - Lung infiltration [Unknown]
  - Fungal infection [Unknown]
  - Retinal vein occlusion [Unknown]
  - Photophobia [Unknown]
  - Device expulsion [Unknown]
  - Pulmonary embolism [Unknown]

NARRATIVE: CASE EVENT DATE: 20040528
